FAERS Safety Report 6289906-9 (Version None)
Quarter: 2009Q3

REPORT INFORMATION
  Report Type: 
  Country: None (occurrence: None)
  Receive Date: 20090730
  Receipt Date: 20080912
  Transmission Date: 20100115
  Serious: No
  Sender: FDA-Public Use
  Company Number: US-BRISTOL-MYERS SQUIBB COMPANY-14334361

PATIENT
  Sex: Female

DRUGS (2)
  1. COUMADIN [Suspect]
  2. TYLENOL (CAPLET) [Suspect]
     Dosage: 1 DOSAGEFORM = 2 (UNITS NOT MENTIONED). DECREASED TO 2 TIMES A DAY TWO TABS

REACTIONS (6)
  - ABDOMINAL DISCOMFORT [None]
  - ASTHENIA [None]
  - CHILLS [None]
  - DIZZINESS [None]
  - INTERNATIONAL NORMALISED RATIO DECREASED [None]
  - NAUSEA [None]
